FAERS Safety Report 19705300 (Version 1)
Quarter: 2021Q3

REPORT INFORMATION
  Report Type: Spontaneous
  Country: US (occurrence: US)
  Receive Date: 20210816
  Receipt Date: 20210816
  Transmission Date: 20211014
  Serious: Yes (Hospitalization)
  Sender: FDA-Public Use
  Company Number: None

PATIENT
  Age: 78 Year
  Sex: Female
  Weight: 58.5 kg

DRUGS (9)
  1. TRIAMTERENE ?HCTZ [Concomitant]
  2. CAPECITABINE. [Suspect]
     Active Substance: CAPECITABINE
     Indication: BREAST CANCER
     Dosage: ?          OTHER FREQUENCY:BID FOR 14/21DAYS;?
     Route: 048
     Dates: start: 20210723
  3. CENTRUM [Concomitant]
     Active Substance: VITAMINS
  4. CITRACAL [Concomitant]
     Active Substance: CALCIUM CITRATE
  5. CAPECITABINE. [Suspect]
     Active Substance: CAPECITABINE
     Indication: BREAST CANCER
     Dosage: ?          OTHER FREQUENCY:BID 14/21 DAYS;?
     Route: 048
     Dates: start: 20210723
  6. LEVO?T [Concomitant]
     Active Substance: LEVOTHYROXINE SODIUM
  7. DIPHENOXYLATE? ATROPINE [Concomitant]
  8. POTASSIUM CHLORIDE. [Concomitant]
     Active Substance: POTASSIUM CHLORIDE
  9. SIMVASTATIN. [Concomitant]
     Active Substance: SIMVASTATIN

REACTIONS (1)
  - Hospitalisation [None]

NARRATIVE: CASE EVENT DATE: 20210813
